FAERS Safety Report 9626659 (Version 5)
Quarter: 2018Q3

REPORT INFORMATION
  Report Type: Spontaneous
  Country: DE (occurrence: DE)
  Receive Date: 20131016
  Receipt Date: 20180724
  Transmission Date: 20181010
  Serious: Yes (Congenital Anomaly, Other)
  Sender: FDA-Public Use
  Company Number: DE-PFIZER INC-2013291357

PATIENT
  Sex: Female
  Weight: 1.87 kg

DRUGS (7)
  1. DOPEGYT [Suspect]
     Active Substance: METHYLDOPA
     Dosage: 1500 MG/DAY SHORTLY BEFORE BIRTH
     Route: 064
     Dates: start: 20090922, end: 20100412
  2. FERROUS GLYCINE SULFATE [Suspect]
     Active Substance: FERROUS GLYCINE SULFATE
     Indication: MATERNAL EXPOSURE TIMING UNSPECIFIED
     Dosage: 25 MG, 2X/DAY
     Route: 064
     Dates: start: 20090820, end: 20100412
  3. DOPEGYT [Suspect]
     Active Substance: METHYLDOPA
     Indication: HYPERTENSION
     Dosage: 250 MG DAILY, 4.5. ? 33.4. GESTATIONAL WEEK), SHORTLY BEFORE BIRTH: 6X250MG (GW 4+5?33+4)
     Route: 064
     Dates: end: 20090922
  4. UTROGEST [Suspect]
     Active Substance: PROGESTERONE
     Indication: ABORTION THREATENED
     Dosage: 100 MG, DAILY; 11. ? 14. GESTATIONAL WEEK (GW 11?14)
     Route: 064
     Dates: start: 20091105, end: 20091126
  5. RAMIPRIL. [Suspect]
     Active Substance: RAMIPRIL
     Indication: HYPERTENSION
     Dosage: UNK 0. ? 4.5. GESTATIONAL WEEK (GW 0?4+5)
     Route: 064
     Dates: start: 20090820, end: 20090922
  6. OBSIDAN (PROPRANOLOL HYDROCHLORIDE) [Suspect]
     Active Substance: PROPRANOLOL HYDROCHLORIDE
     Indication: HYPERTENSION
     Dosage: 25 MG, 2X/DAY; 0. ? 33.4. GESTATIONAL WEEK (GW 0?33+4)
     Route: 064
     Dates: start: 20090820, end: 20100412
  7. FOLSAEURE [Concomitant]
     Active Substance: FOLIC ACID
     Indication: PROPHYLAXIS OF NEURAL TUBE DEFECT
     Dosage: 0.8 MG/DAY; 5. ? 12. GESTATIONAL WEEK
     Route: 064

REACTIONS (6)
  - Premature baby [Unknown]
  - Maternal drugs affecting foetus [None]
  - Respiratory disorder neonatal [Unknown]
  - Small for dates baby [Unknown]
  - Maternal exposure during pregnancy [Unknown]
  - Caesarean section [None]

NARRATIVE: CASE EVENT DATE: 2009
